FAERS Safety Report 8621970-1 (Version None)
Quarter: 2012Q3

REPORT INFORMATION
  Report Type: 
  Country: None (occurrence: None)
  Receive Date: 20120822
  Receipt Date: 20120822
  Transmission Date: 20120928
  Serious: No
  Sender: FDA-Public Use
  Company Number: None

PATIENT
  Age: 75 Year
  Sex: Male
  Weight: 92.2 kg

DRUGS (1)
  1. BRIMONIDINE TARTRATE [Suspect]
     Dosage: 1 DROPS TID EYE
     Route: 047
     Dates: start: 20120605, end: 20120625

REACTIONS (2)
  - OCULAR HYPERAEMIA [None]
  - EYE OEDEMA [None]
